FAERS Safety Report 19169608 (Version 1)
Quarter: 2021Q2

REPORT INFORMATION
  Report Type: Spontaneous
  Country: IN (occurrence: IN)
  Receive Date: 20210422
  Receipt Date: 20210422
  Transmission Date: 20210717
  Serious: Yes (Hospitalization)
  Sender: FDA-Public Use
  Company Number: IN-STRIDES ARCOLAB LIMITED-2021SP004617

PATIENT
  Age: 21 Year
  Sex: Male

DRUGS (8)
  1. PHENYTOIN. [Interacting]
     Active Substance: PHENYTOIN
     Dosage: 100 MILLIGRAM
     Route: 042
  2. PHENYTOIN. [Interacting]
     Active Substance: PHENYTOIN
     Indication: SEIZURE
     Dosage: 400 MILLIGRAM
     Route: 065
  3. NORMAL SALINE [Concomitant]
     Active Substance: SODIUM CHLORIDE
     Indication: PRODUCT USED FOR UNKNOWN INDICATION
     Dosage: 250 MILLILITER FOR 1 HOUR
     Route: 065
  4. DNS [Concomitant]
     Indication: PRODUCT USED FOR UNKNOWN INDICATION
     Dosage: UNK
     Route: 065
  5. METRONIDAZOLE. [Interacting]
     Active Substance: METRONIDAZOLE
     Indication: PRODUCT USED FOR UNKNOWN INDICATION
     Dosage: 500 MILLIGRAM INFUSION
     Route: 042
  6. RANITIDINE. [Suspect]
     Active Substance: RANITIDINE
     Indication: PRODUCT USED FOR UNKNOWN INDICATION
     Dosage: 50 MILLIGRAM, EVERY 12 HRS
     Route: 042
  7. PHENYTOIN. [Interacting]
     Active Substance: PHENYTOIN
     Dosage: 100 MILLIGRAM, EVERY 8 HRS
     Route: 042
  8. DICYCLOVERINE [Concomitant]
     Active Substance: DICYCLOMINE HYDROCHLORIDE
     Indication: PRODUCT USED FOR UNKNOWN INDICATION
     Dosage: UNK
     Route: 065

REACTIONS (2)
  - Drug interaction [Unknown]
  - Toxicity to various agents [Unknown]
